FAERS Safety Report 24204870 (Version 1)
Quarter: 2024Q3

REPORT INFORMATION
  Report Type: Spontaneous
  Country: US (occurrence: US)
  Receive Date: 20240813
  Receipt Date: 20240813
  Transmission Date: 20241017
  Serious: Yes (Other)
  Sender: JOHNSON AND JOHNSON
  Company Number: US-JNJFOC-20240825469

PATIENT
  Sex: Male

DRUGS (2)
  1. INVEGA HAFYERA [Suspect]
     Active Substance: PALIPERIDONE PALMITATE
     Indication: Product used for unknown indication
     Dosage: APPLICATION DATE WAS ON 09-AUG-2024
     Route: 030
  2. INVEGA HAFYERA [Suspect]
     Active Substance: PALIPERIDONE PALMITATE

REACTIONS (8)
  - Erectile dysfunction [Unknown]
  - Wrong technique in product usage process [Unknown]
  - Electronic cigarette user [Unknown]
  - Excessive masturbation [Unknown]
  - Weight decreased [Unknown]
  - Depression [Unknown]
  - Abnormal behaviour [Unknown]
  - Feeling cold [Unknown]
